FAERS Safety Report 5254325-0 (Version None)
Quarter: 2007Q1

REPORT INFORMATION
  Report Type: 
  Country: None (occurrence: None)
  Receive Date: 20070302
  Receipt Date: 20070220
  Transmission Date: 20070707
  Serious: Yes (Death)
  Sender: FDA-Public Use
  Company Number: JP-SANOFI-SYNTHELABO-A01200608458

PATIENT
  Sex: Male
  Weight: 68 kg

DRUGS (7)
  1. OXALIPLATIN [Suspect]
     Indication: RECTAL CANCER
     Route: 042
     Dates: start: 20060920, end: 20060920
  2. DECADRON [Concomitant]
     Indication: NAUSEA
     Route: 041
     Dates: start: 20060726, end: 20060920
  3. DECADRON [Concomitant]
     Indication: VOMITING
     Route: 041
     Dates: start: 20060726, end: 20060920
  4. KYTRIL [Concomitant]
     Indication: NAUSEA
     Route: 041
     Dates: start: 20060726, end: 20060920
  5. KYTRIL [Concomitant]
     Indication: VOMITING
     Route: 041
     Dates: start: 20060726, end: 20060920
  6. FLUOROURACIL [Suspect]
     Route: 042
     Dates: start: 20060920, end: 20060920
  7. LEUCOVORIN CALCIUM [Suspect]
     Route: 042
     Dates: start: 20060920, end: 20060920

REACTIONS (6)
  - CARDIAC FAILURE [None]
  - CARDIOMEGALY [None]
  - DISEASE PROGRESSION [None]
  - DYSPNOEA EXERTIONAL [None]
  - LYMPHANGIOSIS CARCINOMATOSA [None]
  - METASTASES TO LUNG [None]
